FAERS Safety Report 10547271 (Version 3)
Quarter: 2014Q4

REPORT INFORMATION
  Report Type: Report from Study
  Country: DE (occurrence: DE)
  Receive Date: 20141028
  Receipt Date: 20141106
  Transmission Date: 20150529
  Serious: Yes (Life-Threatening, Hospitalization)
  Sender: FDA-Public Use
  Company Number: DE-ROCHE-1447730

PATIENT
  Age: 61 Year
  Sex: Female
  Weight: 76 kg

DRUGS (6)
  1. BEVACIZUMAB [Suspect]
     Active Substance: BEVACIZUMAB
     Indication: OVARIAN CANCER
     Dosage: LAST DOSE PRIOR TO EVENT REDUCED GENERAL CONDITION ON 25/SEP/2014
     Route: 042
     Dates: start: 20140904
  2. CARBOPLATIN. [Suspect]
     Active Substance: CARBOPLATIN
     Indication: OVARIAN CANCER
     Dosage: LAST DOSE PRIOR TO SAE: 01/AUG/2014.LAST DOSE PRIOR TO EVENT REDUCED GENERAL CONDITION ON 25/SEP/201
     Route: 042
     Dates: start: 20140801
  3. CARBOPLATIN. [Suspect]
     Active Substance: CARBOPLATIN
     Dosage: ON 06/AUG/2014 RECEIVED LAST DOSE PRIOR TO SAE
     Route: 042
     Dates: start: 20140806
  4. CARBOPLATIN. [Suspect]
     Active Substance: CARBOPLATIN
     Dosage: AUC 3
     Route: 042
     Dates: start: 20140904
  5. GEMCITABINE [Suspect]
     Active Substance: GEMCITABINE\GEMCITABINE HYDROCHLORIDE
     Indication: OVARIAN CANCER
     Dosage: LAST DOSE PRIOR TO SAE: 08/AUG/2014, LAST DOSE PRIOR TO EVENT REDUCED GENERAL CONDITION ON 25/SEP/20
     Route: 042
     Dates: start: 20140801
  6. GEMCITABINE [Suspect]
     Active Substance: GEMCITABINE\GEMCITABINE HYDROCHLORIDE
     Route: 042
     Dates: start: 20140904

REACTIONS (4)
  - General physical health deterioration [Recovered/Resolved]
  - Neutropenia [Recovered/Resolved]
  - Pleural effusion [Recovered/Resolved]
  - General physical health deterioration [Recovered/Resolved]

NARRATIVE: CASE EVENT DATE: 20140806
